FAERS Safety Report 16502669 (Version 2)
Quarter: 2019Q3

REPORT INFORMATION
  Report Type: Spontaneous
  Country: DE (occurrence: DE)
  Receive Date: 20190701
  Receipt Date: 20190919
  Transmission Date: 20191004
  Serious: Yes (Congenital Anomaly)
  Sender: FDA-Public Use
  Company Number: PHHY2019DE145148

PATIENT

DRUGS (1)
  1. LEVETIRACETAM. [Suspect]
     Active Substance: LEVETIRACETAM
     Indication: FOETAL EXPOSURE DURING PREGNANCY
     Dosage: MATRENAL DOSE: 1000 UNK, (UNITS UNSPECIFIED)
     Route: 064

REACTIONS (3)
  - Naevus flammeus [Unknown]
  - Congenital cerebral cyst [Unknown]
  - Foetal exposure during pregnancy [Unknown]
